FAERS Safety Report 10151202 (Version 1)
Quarter: 2014Q2

REPORT INFORMATION
  Report Type: Spontaneous
  Country: US (occurrence: US)
  Receive Date: 20140502
  Receipt Date: 20140502
  Transmission Date: 20141212
  Serious: No
  Sender: FDA-Public Use
  Company Number: US-ASTRAZENECA-2014SE06565

PATIENT
  Age: 79 Year
  Sex: Female

DRUGS (3)
  1. PRILOSEC OTC [Suspect]
     Route: 048
     Dates: start: 20140117, end: 20140120
  2. NORVASC [Concomitant]
     Dosage: UNKNOWN
  3. POTASSIUM [Concomitant]
     Dosage: UNKNOWN

REACTIONS (3)
  - Extrasystoles [Not Recovered/Not Resolved]
  - Cardiac flutter [Not Recovered/Not Resolved]
  - Heart rate irregular [Not Recovered/Not Resolved]
